FAERS Safety Report 5837047-4 (Version None)
Quarter: 2008Q3

REPORT INFORMATION
  Report Type: 
  Country: None (occurrence: None)
  Receive Date: 20080807
  Receipt Date: 20080801
  Transmission Date: 20090109
  Serious: Yes (Life-Threatening)
  Sender: FDA-Public Use
  Company Number: GB-ASTRAZENECA-2008GB01471

PATIENT

DRUGS (2)
  1. QUETIAPINE FUMARATE [Suspect]
     Route: 048
  2. AMYTRIPTYLINE [Concomitant]

REACTIONS (1)
  - CARDIAC ARREST [None]
